FAERS Safety Report 17348033 (Version 1)
Quarter: 2020Q1

REPORT INFORMATION
  Report Type: Report from Study
  Country: CH (occurrence: CH)
  Receive Date: 20200130
  Receipt Date: 20200130
  Transmission Date: 20200409
  Serious: Yes (Other)
  Sender: FDA-Public Use
  Company Number: NVSC2019CH086571

PATIENT
  Age: 61 Year
  Sex: Male
  Weight: 91.3 kg

DRUGS (2)
  1. BYL719 [Suspect]
     Active Substance: ALPELISIB
     Indication: PROSTATE CANCER
     Dosage: 200 MG
     Route: 048
  2. DEXAMETHASONE. [Concomitant]
     Active Substance: DEXAMETHASONE
     Indication: PRODUCT USED FOR UNKNOWN INDICATION
     Dosage: 1000 MG
     Route: 065

REACTIONS (4)
  - Hyperbilirubinaemia [Not Recovered/Not Resolved]
  - Oesophagitis [Recovered/Resolved]
  - Mucosal inflammation [Recovered/Resolved]
  - Hyperglycaemia [Not Recovered/Not Resolved]

NARRATIVE: CASE EVENT DATE: 20191204
